FAERS Safety Report 21391199 (Version 1)
Quarter: 2022Q3

REPORT INFORMATION
  Report Type: Spontaneous
  Country: ES (occurrence: ES)
  Receive Date: 20220929
  Receipt Date: 20220929
  Transmission Date: 20221027
  Serious: Yes (Hospitalization)
  Sender: FDA-Public Use
  Company Number: None

PATIENT
  Age: 49 Year
  Sex: Female

DRUGS (2)
  1. MEROPENEM [Suspect]
     Active Substance: MEROPENEM
     Indication: Gallbladder obstruction
     Dosage: 2 G, 3X/DAY;FREQ:8 H;
     Route: 042
     Dates: start: 20220515, end: 20220519
  2. YESCARTA [Suspect]
     Active Substance: AXICABTAGENE CILOLEUCEL
     Indication: Follicular lymphoma
     Dosage: 0.4-2X10E8 CAR T CELLS DISPERSION FOR INFUSION 1 BAG OF 68 ML VOLUME
     Route: 042
     Dates: start: 20220504, end: 20220504

REACTIONS (3)
  - Myoclonus [Recovered/Resolved]
  - Encephalopathy [Recovered/Resolved]
  - Off label use [Unknown]

NARRATIVE: CASE EVENT DATE: 20220515
